FAERS Safety Report 5338639-1 (Version None)
Quarter: 2007Q2

REPORT INFORMATION
  Report Type: 
  Country: None (occurrence: None)
  Receive Date: 20070322
  Receipt Date: 20060317
  Transmission Date: 20071010
  Serious: Yes (Other)
  Sender: FDA-Public Use
  Company Number: 200611184BCC

PATIENT
  Age: 45 Year
  Sex: Male
  Weight: 72.5755 kg

DRUGS (1)
  1. ALEVE [Suspect]
     Indication: MUSCULOSKELETAL PAIN
     Dosage: 880 MG, OM, ORAL
     Route: 048
     Dates: start: 20060201

REACTIONS (1)
  - BLOOD URINE PRESENT [None]
